FAERS Safety Report 6147699-X (Version None)
Quarter: 2009Q2

REPORT INFORMATION
  Report Type: 
  Country: None (occurrence: None)
  Receive Date: 20090408
  Receipt Date: 20090402
  Transmission Date: 20091009
  Serious: Yes (Other)
  Sender: FDA-Public Use
  Company Number: PHHY2009GB12642

PATIENT

DRUGS (2)
  1. DESFERAL [Suspect]
     Indication: IRON OVERLOAD
  2. DESFERAL [Suspect]
     Indication: APLASIA PURE RED CELL

REACTIONS (1)
  - RENAL FAILURE CHRONIC [None]
